FAERS Safety Report 7794235-8 (Version None)
Quarter: 2011Q3

REPORT INFORMATION
  Report Type: 
  Country: None (occurrence: None)
  Receive Date: 20110929
  Receipt Date: 20110921
  Transmission Date: 20111222
  Serious: Yes (Hospitalization)
  Sender: FDA-Public Use
  Company Number: 2011MA014263

PATIENT
  Age: 91 Year
  Sex: Male

DRUGS (5)
  1. FUROSEMIDE [Concomitant]
  2. OMEPRAZOLE [Concomitant]
  3. SIMVASTATIN [Concomitant]
  4. RISPERIDONE [Suspect]
     Indication: DEMENTIA
     Dosage: 0.5 MG;HS;PO
     Route: 048
     Dates: end: 20110904
  5. ZOPICLONE [Concomitant]

REACTIONS (4)
  - DEMENTIA [None]
  - CONDITION AGGRAVATED [None]
  - HYPOTHERMIA [None]
  - ATRIOVENTRICULAR BLOCK COMPLETE [None]
